FAERS Safety Report 6166504-9 (Version None)
Quarter: 2009Q2

REPORT INFORMATION
  Report Type: 
  Country: None (occurrence: None)
  Receive Date: 20090422
  Receipt Date: 20090422
  Transmission Date: 20091009
  Serious: Yes (Other)
  Sender: FDA-Public Use
  Company Number: None

PATIENT
  Age: 75 Year
  Sex: Female
  Weight: 76.2043 kg

DRUGS (1)
  1. BUDEPRION XL 150 MG TEVA [Suspect]
     Indication: MAJOR DEPRESSION
     Dosage: 450 MG ONCE DAILY PO
     Route: 048
     Dates: start: 20090125, end: 20090220

REACTIONS (5)
  - ANXIETY [None]
  - DIARRHOEA [None]
  - GASTROINTESTINAL DISORDER [None]
  - HEADACHE [None]
  - INITIAL INSOMNIA [None]
